APPROVED DRUG PRODUCT: LORAZEPAM
Active Ingredient: LORAZEPAM
Strength: 0.5MG
Dosage Form/Route: TABLET;ORAL
Application: A203572 | Product #001 | TE Code: AB
Applicant: AUROBINDO PHARMA LTD
Approved: Dec 22, 2017 | RLD: No | RS: No | Type: RX